FAERS Safety Report 8029090-4 (Version None)
Quarter: 2012Q1

REPORT INFORMATION
  Report Type: 
  Country: None (occurrence: None)
  Receive Date: 20120106
  Receipt Date: 20111226
  Transmission Date: 20120608
  Serious: Yes (Death)
  Sender: FDA-Public Use
  Company Number: FR-EISAI INC-E7273-00287-SPO-FR

PATIENT
  Sex: Male
  Weight: 43 kg

DRUGS (8)
  1. TARGRETIN [Suspect]
     Route: 048
     Dates: start: 20111101, end: 20111205
  2. ROFERON-A [Suspect]
     Dosage: 300 MUI
     Route: 065
     Dates: start: 20111101
  3. DEXERYL [Concomitant]
     Dosage: UNKNOWN
  4. EMEND [Suspect]
     Indication: VOMITING
     Route: 065
     Dates: start: 20110901
  5. AMITRIPTYLINE HCL [Concomitant]
     Dosage: 10 DROPS
     Route: 048
  6. LEXOMIL [Concomitant]
     Dosage: UNKNOWN
     Route: 065
  7. LEVOTHYROXINE SODIUM [Concomitant]
     Route: 048
  8. XERIAL 50 [Concomitant]
     Dosage: UNKNOWN

REACTIONS (1)
  - DEHYDRATION [None]
